FAERS Safety Report 15794232 (Version 4)
Quarter: 2019Q1

REPORT INFORMATION
  Report Type: Report from Study
  Country: IE (occurrence: IE)
  Receive Date: 20190107
  Receipt Date: 20190326
  Transmission Date: 20190417
  Serious: Yes (Hospitalization, Other)
  Sender: FDA-Public Use
  Company Number: IE-JNJFOC-20190101688

PATIENT
  Age: 69 Year
  Sex: Male

DRUGS (13)
  1. FLUCONAZOLE. [Concomitant]
     Active Substance: FLUCONAZOLE
     Route: 065
  2. COVERSYL ARGININE [Concomitant]
     Active Substance: PERINDOPRIL ARGININE
     Route: 050
  3. MYCOSTATIN [Concomitant]
     Active Substance: NYSTATIN
     Route: 050
  4. KEPPRA [Concomitant]
     Active Substance: LEVETIRACETAM
     Route: 050
  5. ZYTIGA [Suspect]
     Active Substance: ABIRATERONE ACETATE
     Indication: PROSTATE CANCER METASTATIC
     Route: 048
     Dates: start: 20190117
  6. LANSOPRAZOLE. [Concomitant]
     Active Substance: LANSOPRAZOLE
     Route: 050
  7. NEULASTA [Suspect]
     Active Substance: PEGFILGRASTIM
     Indication: PRODUCT USED FOR UNKNOWN INDICATION
     Route: 058
     Dates: start: 20160907
  8. ZYTIGA [Suspect]
     Active Substance: ABIRATERONE ACETATE
     Indication: PROSTATE CANCER METASTATIC
     Route: 048
     Dates: start: 20181206, end: 20181229
  9. ZOPLICONE [Concomitant]
     Active Substance: ZOPICLONE
     Route: 050
  10. AMLODIPINE [Concomitant]
     Active Substance: AMLODIPINE BESYLATE
     Route: 050
  11. TRAMADOL. [Concomitant]
     Active Substance: TRAMADOL
     Route: 050
  12. DEXAMETHASONE. [Concomitant]
     Active Substance: DEXAMETHASONE
     Route: 050
  13. PARACETAMOL [Concomitant]
     Active Substance: ACETAMINOPHEN
     Route: 050

REACTIONS (3)
  - Mouth ulceration [Recovering/Resolving]
  - Skin ulcer [Recovering/Resolving]
  - Pneumonia [Recovered/Resolved]

NARRATIVE: CASE EVENT DATE: 20181218
